FAERS Safety Report 25147467 (Version 1)
Quarter: 2025Q2

REPORT INFORMATION
  Report Type: Spontaneous
  Country: US (occurrence: US)
  Receive Date: 20250402
  Receipt Date: 20250402
  Transmission Date: 20250716
  Serious: No
  Sender: AMGEN
  Company Number: US-AMGEN-USASP2025061255

PATIENT

DRUGS (1)
  1. PREDNISONE [Suspect]
     Active Substance: PREDNISONE
     Indication: Lupus nephritis
     Route: 065

REACTIONS (8)
  - Pain [Unknown]
  - General physical condition abnormal [Unknown]
  - Fatigue [Unknown]
  - Social problem [Unknown]
  - Anxiety [Unknown]
  - Sleep disorder [Unknown]
  - Depression [Unknown]
  - Off label use [Unknown]
